FAERS Safety Report 16271574 (Version 2)
Quarter: 2020Q4

REPORT INFORMATION
  Report Type: Report from Study
  Country: US (occurrence: US)
  Receive Date: 20190503
  Receipt Date: 20201124
  Transmission Date: 20210113
  Serious: Yes (Other)
  Sender: FDA-Public Use
  Company Number: US-JNJFOC-20190438926

PATIENT
  Age: 40 Year
  Sex: Female

DRUGS (2)
  1. TREMFYA [Suspect]
     Active Substance: GUSELKUMAB
     Route: 058
  2. TREMFYA [Suspect]
     Active Substance: GUSELKUMAB
     Indication: PSORIASIS
     Route: 058
     Dates: start: 20190220

REACTIONS (5)
  - Rash [Unknown]
  - Diarrhoea [Unknown]
  - Fatigue [Unknown]
  - Vomiting projectile [Unknown]
  - Nasopharyngitis [Unknown]
